FAERS Safety Report 13456601 (Version 1)
Quarter: 2017Q2

REPORT INFORMATION
  Report Type: Report from Study
  Country: None (occurrence: BR)
  Receive Date: 20170418
  Receipt Date: 20170418
  Transmission Date: 20170830
  Serious: Yes (Other)
  Sender: FDA-Public Use
  Company Number: BR-ABBVIE-17P-020-1946898-00

PATIENT
  Sex: Female
  Weight: 62 kg

DRUGS (7)
  1. ASPIRINA PREVENT [Concomitant]
     Active Substance: ASPIRIN
     Indication: PROPHYLAXIS
  2. DUPHASTON [Concomitant]
     Active Substance: DYDROGESTERONE
     Indication: LUTEAL PHASE DEFICIENCY
  3. PROGESTAN [Concomitant]
     Active Substance: PROGESTERONE
     Indication: VITAMIN SUPPLEMENTATION
  4. OSCAL D [Concomitant]
     Active Substance: CALCIUM CARBONATE\CHOLECALCIFEROL
     Indication: PROPHYLAXIS
  5. SYNTHROID [Suspect]
     Active Substance: LEVOTHYROXINE SODIUM
     Indication: HORMONE LEVEL ABNORMAL
     Dosage: IN THE MORNING AND FASTING
     Route: 048
  6. ENDOFOLIN [Concomitant]
     Active Substance: FOLIC ACID
     Indication: BLOOD FOLATE
  7. MINERALS NOS W/VITAMINS NOS [Concomitant]
     Active Substance: MINERALS\VITAMINS
     Indication: VITAMIN SUPPLEMENTATION

REACTIONS (2)
  - Maternal exposure during pregnancy [Unknown]
  - High risk pregnancy [Unknown]
